FAERS Safety Report 6115395-0 (Version None)
Quarter: 2009Q1

REPORT INFORMATION
  Report Type: 
  Country: None (occurrence: None)
  Receive Date: 20090313
  Receipt Date: 20090310
  Transmission Date: 20090719
  Serious: Yes (Life-Threatening, Other)
  Sender: FDA-Public Use
  Company Number: PHEH2009US02458

PATIENT
  Age: 54 Year
  Sex: Female

DRUGS (2)
  1. LAMISIL [Suspect]
     Dosage: UNK
  2. ANTIHYPERTENSIVES [Concomitant]
     Dosage: UNK, UNK

REACTIONS (12)
  - ABDOMINAL DISCOMFORT [None]
  - ANOREXIA [None]
  - BIOPSY KIDNEY [None]
  - BLOOD CREATININE INCREASED [None]
  - DYSGEUSIA [None]
  - FEELING ABNORMAL [None]
  - MALAISE [None]
  - NAIL DISCOLOURATION [None]
  - RENAL DISORDER [None]
  - RETCHING [None]
  - VOMITING [None]
  - WEIGHT DECREASED [None]
